FAERS Safety Report 8971236 (Version 1)
Quarter: 2012Q4

REPORT INFORMATION
  Report Type: 
  Country: US (occurrence: US)
  Receive Date: 20121218
  Receipt Date: 20121218
  Transmission Date: 20130627
  Serious: No
  Sender: FDA-Public Use
  Company Number: US-BAYER-2012-132360

PATIENT
  Age: 82 Year
  Sex: Female
  Weight: 77.1 kg

DRUGS (1)
  1. ALEVE GELCAP [Suspect]
     Indication: PAIN RELIEF
     Dosage: 2 DF, ONCE
     Route: 048
     Dates: start: 20121211, end: 20121211

REACTIONS (1)
  - Drug ineffective [None]
